FAERS Safety Report 9067814 (Version 1)
Quarter: 2013Q1

REPORT INFORMATION
  Report Type: Spontaneous
  Country: US (occurrence: US)
  Receive Date: 20130128
  Receipt Date: 20130128
  Transmission Date: 20140127
  Serious: Yes (Other)
  Sender: FDA-Public Use
  Company Number: US-ELI_LILLY_AND_COMPANY-US201211006356

PATIENT
  Age: 65 Year
  Sex: Female
  Weight: 67.12 kg

DRUGS (3)
  1. CYMBALTA [Suspect]
     Indication: DIABETIC NEUROPATHY
     Dosage: 20 MG, BID
     Route: 048
     Dates: start: 20120727
  2. NEURONTIN [Concomitant]
  3. ADVAIR [Concomitant]

REACTIONS (6)
  - Suicidal ideation [Recovered/Resolved]
  - Homicidal ideation [Recovered/Resolved]
  - Dyspnoea [Recovered/Resolved]
  - Anxiety [Recovered/Resolved]
  - Cold-stimulus headache [Recovered/Resolved]
  - Neurological symptom [Recovered/Resolved]
